FAERS Safety Report 13340480 (Version 2)
Quarter: 2017Q2

REPORT INFORMATION
  Report Type: Spontaneous
  Country: US (occurrence: US)
  Receive Date: 20170316
  Receipt Date: 20170612
  Transmission Date: 20170830
  Serious: Yes (Other)
  Sender: FDA-Public Use
  Company Number: US-PFIZER INC-2017114033

PATIENT
  Age: 33 Year
  Sex: Female

DRUGS (1)
  1. BOSULIF [Suspect]
     Active Substance: BOSUTINIB MONOHYDRATE
     Indication: CHRONIC MYELOID LEUKAEMIA
     Dosage: 500 MG, DAILY
     Route: 048

REACTIONS (5)
  - Sputum discoloured [Unknown]
  - Viral upper respiratory tract infection [Unknown]
  - Cough [Unknown]
  - Respiratory tract infection [Not Recovered/Not Resolved]
  - Pyrexia [Unknown]
